FAERS Safety Report 7036062-5 (Version None)
Quarter: 2010Q4

REPORT INFORMATION
  Report Type: 
  Country: None (occurrence: None)
  Receive Date: 20101007
  Receipt Date: 20101007
  Transmission Date: 20110411
  Serious: Yes (Other)
  Sender: FDA-Public Use
  Company Number: None

PATIENT
  Age: 23 Year
  Sex: Female
  Weight: 123.3784 kg

DRUGS (1)
  1. IMPLANON [Suspect]
     Indication: CONTRACEPTION
     Dosage: 68 MG CONSTANT SUBDERMAL
     Route: 059
     Dates: start: 20090303, end: 20101005

REACTIONS (12)
  - ACNE [None]
  - AMENORRHOEA [None]
  - ARTHRALGIA [None]
  - BACK PAIN [None]
  - DEPRESSION [None]
  - HEADACHE [None]
  - IMPLANT SITE PAIN [None]
  - MOOD SWINGS [None]
  - MUSCLE SPASMS [None]
  - OEDEMA PERIPHERAL [None]
  - PELVIC PAIN [None]
  - WEIGHT INCREASED [None]
